FAERS Safety Report 21605172 (Version 4)
Quarter: 2023Q1

REPORT INFORMATION
  Report Type: Spontaneous
  Country: CH (occurrence: CH)
  Receive Date: 20221116
  Receipt Date: 20230202
  Transmission Date: 20230417
  Serious: Yes (Other)
  Sender: FDA-Public Use
  Company Number: CH-009507513-2211CHE003602

PATIENT
  Age: 90 Year
  Sex: Female

DRUGS (4)
  1. JANUMET [Suspect]
     Active Substance: METFORMIN HYDROCHLORIDE\SITAGLIPTIN PHOSPHATE
     Indication: Type 2 diabetes mellitus
     Dosage: JANUMET 500 MG HALF A TABLET TWICE DAILY
     Route: 048
     Dates: start: 2018
  2. JANUMET [Suspect]
     Active Substance: METFORMIN HYDROCHLORIDE\SITAGLIPTIN PHOSPHATE
     Dosage: JANUMET 500 MG ONE TABLET TWICE DAILY
     Route: 048
  3. CANDESARTAN [Concomitant]
     Active Substance: CANDESARTAN
     Indication: Hypertension
     Dosage: UNK
  4. XARELTO [Concomitant]
     Active Substance: RIVAROXABAN
     Indication: Coagulopathy
     Dosage: 20 MILLIGRAM

REACTIONS (18)
  - Hypothermia [Unknown]
  - Somatic symptom disorder [Unknown]
  - Autonomic nervous system imbalance [Unknown]
  - Heart rate increased [Unknown]
  - Feeling cold [Unknown]
  - Allergy to animal [Unknown]
  - Inflammation [Unknown]
  - Blood glucose abnormal [Unknown]
  - Ill-defined disorder [Unknown]
  - Sleep disorder [Unknown]
  - Peripheral swelling [Unknown]
  - Malaise [Unknown]
  - Erythema [Unknown]
  - Myalgia [Unknown]
  - Pruritus [Unknown]
  - Abdominal pain [Unknown]
  - Incorrect dose administered [Unknown]
  - Wrong technique in product usage process [Unknown]

NARRATIVE: CASE EVENT DATE: 20180101
